FAERS Safety Report 14848766 (Version 1)
Quarter: 2018Q2

REPORT INFORMATION
  Report Type: Spontaneous
  Country: GU (occurrence: GU)
  Receive Date: 20180419
  Receipt Date: 20180419
  Transmission Date: 20180711
  Serious: No
  Sender: FDA-Public Use
  Company Number: None

PATIENT
  Age: 72 Year
  Sex: Male
  Weight: 67.95 kg

DRUGS (3)
  1. BENZONATATE. [Suspect]
     Active Substance: BENZONATATE
     Indication: COUGH
     Dates: start: 20180328, end: 20180408
  2. METOPROLOL SUCCINATE ER 25 MG [Concomitant]
     Dates: start: 20180321
  3. PRAVASTATIN 10 MG [Concomitant]
     Active Substance: PRAVASTATIN SODIUM
     Dates: start: 20180321

REACTIONS (3)
  - Rash [None]
  - Erythema [None]
  - Pruritus [None]

NARRATIVE: CASE EVENT DATE: 20180328
